FAERS Safety Report 12295537 (Version 3)
Quarter: 2017Q4

REPORT INFORMATION
  Report Type: Spontaneous
  Country: US (occurrence: US)
  Receive Date: 20160422
  Receipt Date: 20171002
  Transmission Date: 20180320
  Serious: Yes (Other)
  Sender: FDA-Public Use
  Company Number: US-MUNDIPHARMA DS AND PHARMACOVIGILANCE-USA-2015-0127930

PATIENT
  Age: 14 Year
  Sex: Male

DRUGS (4)
  1. OXYCONTIN [Suspect]
     Active Substance: OXYCODONE HYDROCHLORIDE
     Indication: DRUG USE DISORDER
     Dosage: 20 MG, UNK
  2. HEROIN [Suspect]
     Active Substance: DIAMORPHINE
     Indication: SUBSTANCE USE DISORDER
     Dosage: UNK
     Route: 065
  3. ALCOHOL. [Suspect]
     Active Substance: ALCOHOL
     Indication: SUBSTANCE USE DISORDER
     Dosage: UNK
     Route: 065
  4. COCAINE [Suspect]
     Active Substance: COCAINE
     Indication: SUBSTANCE USE DISORDER
     Dosage: UNK
     Route: 065

REACTIONS (4)
  - Substance dependence [Recovered/Resolved]
  - Substance abuse [Recovered/Resolved]
  - Euphoric mood [Recovered/Resolved]
  - Drug tolerance increased [Recovered/Resolved]

NARRATIVE: CASE EVENT DATE: 1999
